FAERS Safety Report 7430796-6 (Version None)
Quarter: 2011Q2

REPORT INFORMATION
  Report Type: 
  Country: None (occurrence: None)
  Receive Date: 20110421
  Receipt Date: 20110412
  Transmission Date: 20111010
  Serious: Yes (Hospitalization)
  Sender: FDA-Public Use
  Company Number: US-CEPHALON-2011001793

PATIENT
  Sex: Female

DRUGS (2)
  1. ACTIQ [Suspect]
     Indication: ARTHRITIS
     Route: 002
  2. FENTANYL-100 [Concomitant]

REACTIONS (2)
  - INFECTION [None]
  - DRUG PRESCRIBING ERROR [None]
